FAERS Safety Report 4407188-7 (Version None)
Quarter: 2004Q3

REPORT INFORMATION
  Report Type: 
  Country: None (occurrence: None)
  Receive Date: 20040723
  Receipt Date: 20040723
  Transmission Date: 20050211
  Serious: Yes (Other)
  Sender: FDA-Public Use
  Company Number: None

PATIENT
  Age: 83 Year
  Sex: Male
  Weight: 89.3 kg

DRUGS (16)
  1. LOVENOX [Suspect]
  2. THIORIDAZINE [Concomitant]
  3. POTASSIUM CHLORIDE [Concomitant]
  4. ZOLPIDEM TARTRATE [Concomitant]
  5. ACETAMINOPHEN [Concomitant]
  6. PREDNISONE [Concomitant]
  7. LEVOTHYROXINE SODIUM [Concomitant]
  8. HYDROCORTISONE [Concomitant]
  9. HEPARIN SODIUM [Concomitant]
  10. FUROSEMIDE [Concomitant]
  11. DIPHENHYDRAMINE ELIXIR [Concomitant]
  12. LORAZEPAM [Concomitant]
  13. POTASSIUM CHLORIDE [Concomitant]
  14. AMPICILLIN SODIUM/SULBACTAM SODIUM [Concomitant]
  15. VANCOMYCIN [Concomitant]
  16. FAMOTIDINE PREMIX [Concomitant]

REACTIONS (1)
  - RASH [None]
